FAERS Safety Report 10551261 (Version 1)
Quarter: 2014Q4

REPORT INFORMATION
  Report Type: Spontaneous
  Country: FR (occurrence: FR)
  Receive Date: 20141029
  Receipt Date: 20141029
  Transmission Date: 20150529
  Serious: Yes (Death)
  Sender: FDA-Public Use
  Company Number: FR-ROCHE-1479817

PATIENT
  Age: 47 Year
  Sex: Female
  Weight: 46 kg

DRUGS (16)
  1. LEVOTHYROX [Concomitant]
     Active Substance: LEVOTHYROXINE
     Route: 048
     Dates: end: 201408
  2. POLARAMINE [Concomitant]
     Active Substance: DEXCHLORPHENIRAMINE MALEATE
     Route: 042
     Dates: start: 20140729, end: 20140729
  3. BACTRIM [Concomitant]
     Active Substance: SULFAMETHOXAZOLE\TRIMETHOPRIM
     Route: 065
     Dates: end: 201408
  4. PARACETAMOL [Concomitant]
     Active Substance: ACETAMINOPHEN
     Route: 065
     Dates: start: 20140729, end: 20140729
  5. INEXIUM [Concomitant]
     Active Substance: ESOMEPRAZOLE
     Route: 048
     Dates: end: 201408
  6. KEPPRA [Concomitant]
     Active Substance: LEVETIRACETAM
  7. OXALIPLATIN. [Suspect]
     Active Substance: OXALIPLATIN
     Indication: RICHTER^S SYNDROME
     Route: 065
     Dates: start: 20140729, end: 20140729
  8. ZELITREX [Concomitant]
     Active Substance: VALACYCLOVIR HYDROCHLORIDE
     Route: 048
     Dates: end: 201408
  9. ALLOPURINOL. [Concomitant]
     Active Substance: ALLOPURINOL
     Route: 048
     Dates: end: 201408
  10. ROVAMYCINE [Concomitant]
     Active Substance: SPIRAMYCIN
  11. DEXAMETHASONE. [Suspect]
     Active Substance: DEXAMETHASONE
     Indication: RICHTER^S SYNDROME
     Route: 065
     Dates: start: 20140729, end: 20140801
  12. NEORECORMON [Concomitant]
     Active Substance: ERYTHROPOIETIN
     Route: 048
     Dates: start: 201407
  13. MABTHERA [Suspect]
     Active Substance: RITUXIMAB
     Indication: RICHTER^S SYNDROME
     Route: 065
     Dates: start: 20140729, end: 20140729
  14. CYTARABINE. [Suspect]
     Active Substance: CYTARABINE
     Indication: RICHTER^S SYNDROME
     Route: 065
     Dates: start: 20140730, end: 20140730
  15. ONDANSETRON [Concomitant]
     Active Substance: ONDANSETRON
     Route: 065
     Dates: start: 20140729, end: 20140730
  16. VFEND [Concomitant]
     Active Substance: VORICONAZOLE

REACTIONS (2)
  - Febrile bone marrow aplasia [Fatal]
  - Pancytopenia [Fatal]

NARRATIVE: CASE EVENT DATE: 20140805
